FAERS Safety Report 4778125-0 (Version None)
Quarter: 2005Q3

REPORT INFORMATION
  Report Type: 
  Country: None (occurrence: None)
  Receive Date: 20050922
  Receipt Date: 20050913
  Transmission Date: 20060218
  Serious: Yes (Hospitalization, Other)
  Sender: FDA-Public Use
  Company Number: 2005127223

PATIENT
  Age: 73 Year
  Sex: Male
  Weight: 81.6475 kg

DRUGS (2)
  1. ZOLOFT [Suspect]
     Indication: DEPRESSION
     Dosage: 50 MG (50 MEQ, 1 IN 1 D)
     Dates: start: 19990101
  2. ZOLOFT [Suspect]
     Indication: OBSESSIVE-COMPULSIVE DISORDER
     Dosage: 50 MG (50 MEQ, 1 IN 1 D)
     Dates: start: 19990101

REACTIONS (12)
  - APHASIA [None]
  - ASTHENIA [None]
  - CONDITION AGGRAVATED [None]
  - DEEP VEIN THROMBOSIS [None]
  - DEPRESSION [None]
  - DYSPHAGIA [None]
  - EXTRAPYRAMIDAL DISORDER [None]
  - FALL [None]
  - HYPERTENSION [None]
  - OBSESSIVE-COMPULSIVE DISORDER [None]
  - ROAD TRAFFIC ACCIDENT [None]
  - SUBDURAL HAEMATOMA [None]
